FAERS Safety Report 16165263 (Version 4)
Quarter: 2019Q2

REPORT INFORMATION
  Report Type: Report from Study
  Country: JP (occurrence: JP)
  Receive Date: 20190405
  Receipt Date: 20190521
  Transmission Date: 20190711
  Serious: Yes (Hospitalization)
  Sender: FDA-Public Use
  Company Number: JP-REGENERON PHARMACEUTICALS, INC.-2019-25223

PATIENT

DRUGS (20)
  1. CEMIPLIMAB [Suspect]
     Active Substance: CEMIPLIMAB
     Indication: LUNG SQUAMOUS CELL CARCINOMA STAGE IV
     Dosage: 350 MG, Q3W
     Route: 042
     Dates: start: 20181106
  2. ZOPICLONE [Concomitant]
     Active Substance: ZOPICLONE
     Indication: INSOMNIA
     Dosage: 7.5 MG, PRN
     Route: 048
     Dates: start: 20181107
  3. AMLODIPINE BESILATE [Concomitant]
     Active Substance: AMLODIPINE BESYLATE
     Indication: HYPERTENSION
     Dosage: 2.5 MG, QD
     Route: 048
  4. LOXOPROFEN SODIUM HYDRATE [Concomitant]
     Active Substance: LOXOPROFEN SODIUM DIHYDRATE
     Dosage: 100 MG, AS NECESSARY
     Route: 023
     Dates: start: 20181127
  5. ULTRACET [Concomitant]
     Active Substance: ACETAMINOPHEN\TRAMADOL HYDROCHLORIDE
     Indication: BACK PAIN
     Dosage: 8 TABLETS, QID
     Route: 048
     Dates: start: 20190312
  6. RABEPRAZOLE SODIUM. [Concomitant]
     Active Substance: RABEPRAZOLE SODIUM
     Indication: GASTROOESOPHAGEAL REFLUX DISEASE
     Dosage: 10 MG, QD
     Route: 048
  7. OXYCODONE HYDROCHLORIDE HYDRATE [Concomitant]
     Active Substance: OXYCODONE HYDROCHLORIDE
     Dosage: 2.5 MG, PRN
     Route: 048
     Dates: start: 20190304
  8. MAGNESIUM OXIDE. [Concomitant]
     Active Substance: MAGNESIUM OXIDE
     Indication: CONSTIPATION
     Dosage: 330 MG, PRN
     Route: 048
  9. TRAMADOL HYDROCHLORIDE. [Concomitant]
     Active Substance: TRAMADOL HYDROCHLORIDE
     Indication: BACK PAIN
     Dosage: 100 MG, QID
     Route: 048
     Dates: start: 20181120
  10. GLYCERIN (GLYCERIN ENEMA) [Concomitant]
     Indication: CONSTIPATION
     Dosage: 120 ML, QD
     Route: 054
     Dates: start: 20190304, end: 20190304
  11. DIMEMORFAN PHOSPHATE [Concomitant]
     Active Substance: DIMEMORFAN PHOSPHATE
     Indication: COUGH
     Dosage: 10 MG, PRN
     Route: 048
     Dates: start: 20180922
  12. OXYCODONE HYDROCHLORIDE HYDRATE [Concomitant]
     Active Substance: OXYCODONE HYDROCHLORIDE
     Indication: BACK PAIN
     Dosage: 10 MG, BID
     Route: 048
     Dates: start: 20190304
  13. SENNOSIDES A+B CALCIUM [Concomitant]
     Indication: CONSTIPATION
     Dosage: 12 MG, PRN
     Route: 048
     Dates: start: 20190304
  14. PRAVASTATIN SODIUM. [Concomitant]
     Active Substance: PRAVASTATIN SODIUM
     Indication: DYSLIPIDAEMIA
     Dosage: 10 MG, QD
     Route: 048
  15. REBAMIPIDE [Concomitant]
     Active Substance: REBAMIPIDE
     Indication: PROPHYLAXIS
     Dosage: 100 MG, PRN
     Route: 048
     Dates: start: 20181106
  16. CHOLECALCIFEROL,MAGNESIUM CARBONATE,PRECIPITATED CALCIUM CARBONATE [Concomitant]
     Indication: BACK PAIN
     Dosage: 2 TABLETS, QD
     Route: 048
     Dates: start: 20190304
  17. DENOSUMAB [Concomitant]
     Active Substance: DENOSUMAB
     Indication: BACK PAIN
     Dosage: 120 MG, QD
     Route: 058
     Dates: start: 20190304, end: 20190304
  18. SODIUM PICOSULFATE JG [Concomitant]
     Indication: CONSTIPATION
     Dosage: 0.75 %, PRN
     Route: 048
     Dates: start: 20190307
  19. WARFARIN POTASSIUM [Concomitant]
     Active Substance: WARFARIN POTASSIUM
     Indication: ATRIAL FIBRILLATION
     Dosage: 1.5 MG, QD
     Route: 048
     Dates: start: 2016
  20. LOXOPROFEN SODIUM HYDRATE [Concomitant]
     Active Substance: LOXOPROFEN SODIUM DIHYDRATE
     Indication: BACK PAIN
     Dosage: 60 MG, PRN
     Route: 048
     Dates: start: 20181106

REACTIONS (2)
  - Hepatic function abnormal [Recovered/Resolved]
  - Bile duct obstruction [Recovered/Resolved]

NARRATIVE: CASE EVENT DATE: 20190331
